FAERS Safety Report 23582804 (Version 3)
Quarter: 2024Q1

REPORT INFORMATION
  Report Type: Spontaneous
  Country: FR (occurrence: FR)
  Receive Date: 20240301
  Receipt Date: 20240327
  Transmission Date: 20240409
  Serious: Yes (Hospitalization, Other)
  Sender: FDA-Public Use
  Company Number: FR-AFSSAPS-LY2024000096

PATIENT
  Age: 43 Year
  Sex: Female
  Weight: 68 kg

DRUGS (8)
  1. CLARITHROMYCIN [Suspect]
     Active Substance: CLARITHROMYCIN
     Indication: Helicobacter infection
     Dosage: 1000 MILLIGRAM, ONCE A DAY
     Route: 048
     Dates: start: 20240106, end: 20240108
  2. CLARITHROMYCIN [Suspect]
     Active Substance: CLARITHROMYCIN
     Dosage: 1000 MILLIGRAM, ONCE A DAY
     Route: 048
     Dates: start: 20240111, end: 20240111
  3. METRONIDAZOLE [Suspect]
     Active Substance: METRONIDAZOLE
     Indication: Helicobacter infection
     Dosage: 1000 MILLIGRAM, ONCE A DAY
     Route: 048
     Dates: start: 20240106, end: 20240108
  4. METRONIDAZOLE [Suspect]
     Active Substance: METRONIDAZOLE
     Dosage: 1000 MILLIGRAM, ONCE A DAY
     Route: 048
     Dates: start: 20240111, end: 20240111
  5. PYLERA [Suspect]
     Active Substance: BISMUTH SUBCITRATE POTASSIUM\METRONIDAZOLE\TETRACYCLINE HYDROCHLORIDE
     Indication: Product used for unknown indication
     Dosage: UNK
     Route: 065
  6. AMOXICILLIN [Concomitant]
     Active Substance: AMOXICILLIN
     Indication: Helicobacter infection
     Dosage: 2000 MILLIGRAM, ONCE A DAY
     Route: 048
     Dates: start: 20240106, end: 20240108
  7. AMOXICILLIN [Concomitant]
     Active Substance: AMOXICILLIN
     Dosage: 2000 MILLIGRAM, ONCE A DAY
     Route: 048
     Dates: start: 20240111, end: 20240111
  8. ESOMEPRAZOLE [Concomitant]
     Active Substance: ESOMEPRAZOLE
     Indication: Product used for unknown indication
     Dosage: UNK
     Route: 065

REACTIONS (2)
  - Anaphylactoid reaction [Recovered/Resolved]
  - Product availability issue [Recovered/Resolved]

NARRATIVE: CASE EVENT DATE: 20240106
